FAERS Safety Report 9306213 (Version 1)
Quarter: 2013Q2

REPORT INFORMATION
  Report Type: Spontaneous
  Country: GB (occurrence: GB)
  Receive Date: 20130523
  Receipt Date: 20130523
  Transmission Date: 20140414
  Serious: Yes (Hospitalization)
  Sender: FDA-Public Use
  Company Number: GB-GLAXOSMITHKLINE-B0892496A

PATIENT
  Age: 21 Year
  Sex: Female

DRUGS (3)
  1. DUAC GEL [Suspect]
     Indication: ACNE
     Dosage: 1IUAX PER DAY
     Route: 061
     Dates: start: 20130426, end: 20130507
  2. CERAZETTE [Concomitant]
     Dosage: 75MCG PER DAY
  3. FERROUS SULPHATE [Concomitant]

REACTIONS (4)
  - Rash pruritic [Not Recovered/Not Resolved]
  - Swelling face [Not Recovered/Not Resolved]
  - Oropharyngeal pain [Unknown]
  - Throat tightness [Recovering/Resolving]
